FAERS Safety Report 5819113-2 (Version None)
Quarter: 2008Q3

REPORT INFORMATION
  Report Type: 
  Country: None (occurrence: None)
  Receive Date: 20080723
  Receipt Date: 20080707
  Transmission Date: 20090109
  Serious: Yes (Hospitalization)
  Sender: FDA-Public Use
  Company Number: DE-GENENTECH-264440

PATIENT
  Sex: Male

DRUGS (5)
  1. AVASTIN [Suspect]
     Indication: GASTROINTESTINAL CARCINOMA
     Dosage: 400 MG, UNK
     Route: 042
     Dates: start: 20080421, end: 20080602
  2. OXALIPLATIN [Suspect]
     Indication: GASTROINTESTINAL CARCINOMA
     Dosage: 180 MG, UNK
     Route: 042
     Dates: start: 20080421, end: 20080602
  3. FLUOROURACIL [Concomitant]
     Indication: DRUG USE FOR UNKNOWN INDICATION
     Dosage: UNK
     Dates: start: 20080421, end: 20080602
  4. GEMCITABINE [Concomitant]
     Indication: DRUG USE FOR UNKNOWN INDICATION
  5. FOLINIC ACID [Concomitant]
     Indication: DRUG USE FOR UNKNOWN INDICATION
     Dosage: UNK
     Dates: start: 20080421, end: 20080602

REACTIONS (1)
  - PANCREATITIS [None]
